FAERS Safety Report 5088268-2 (Version None)
Quarter: 2006Q3

REPORT INFORMATION
  Report Type: 
  Country: None (occurrence: None)
  Receive Date: 20060727
  Receipt Date: 20060614
  Transmission Date: 20061208
  Serious: Yes (Other)
  Sender: FDA-Public Use
  Company Number: 2006076079

PATIENT
  Age: 79 Year
  Sex: Female

DRUGS (3)
  1. LYRICA [Suspect]
     Indication: PAIN
     Dosage: 150 MG (75 MG 2 IN 1 D),
     Route: 065
     Dates: start: 20060501
  2. OXYCONTIN [Concomitant]
  3. TIZANIDINE HCL [Concomitant]

REACTIONS (2)
  - DIPLOPIA [None]
  - VISION BLURRED [None]
